FAERS Safety Report 4368371-2 (Version None)
Quarter: 2004Q2

REPORT INFORMATION
  Report Type: 
  Country: None (occurrence: None)
  Receive Date: 20040602
  Receipt Date: 20040511
  Transmission Date: 20050107
  Serious: Yes (Hospitalization)
  Sender: FDA-Public Use
  Company Number: US-BRISTOL-MYERS SQUIBB COMPANY-12584413

PATIENT
  Age: 67 Year
  Sex: Male
  Weight: 82 kg

DRUGS (8)
  1. ERBITUX [Suspect]
     Indication: COLON CANCER
     Route: 042
     Dates: start: 20040415, end: 20040415
  2. DECADRON [Concomitant]
     Indication: PREMEDICATION
     Route: 042
  3. AMITRIPTYLINE HCL [Concomitant]
  4. COLACE [Concomitant]
  5. EFFEXOR [Concomitant]
  6. NEXIUM [Concomitant]
  7. POTASSIUM SUPPLEMENT [Concomitant]
  8. THALIDOMIDE [Concomitant]
     Dosage: AT H.S.

REACTIONS (4)
  - DEEP VEIN THROMBOSIS [None]
  - OEDEMA PERIPHERAL [None]
  - PARONYCHIA [None]
  - RASH ERYTHEMATOUS [None]
